FAERS Safety Report 15899553 (Version 3)
Quarter: 2019Q2

REPORT INFORMATION
  Report Type: Spontaneous
  Country: US (occurrence: US)
  Receive Date: 20190201
  Receipt Date: 20190412
  Transmission Date: 20190711
  Serious: Yes (Other)
  Sender: FDA-Public Use
  Company Number: US-ASTRAZENECA-2018SF00902

PATIENT
  Sex: Male
  Weight: 86.2 kg

DRUGS (11)
  1. PRILOSEC [Suspect]
     Active Substance: OMEPRAZOLE MAGNESIUM
     Indication: GASTROOESOPHAGEAL REFLUX DISEASE
     Route: 048
     Dates: start: 201001, end: 201212
  2. PRILOSEC [Suspect]
     Active Substance: OMEPRAZOLE MAGNESIUM
     Indication: GASTROOESOPHAGEAL REFLUX DISEASE
     Route: 048
  3. FLUTICASONE. [Concomitant]
     Active Substance: FLUTICASONE
  4. K-TAB [Concomitant]
     Active Substance: POTASSIUM CHLORIDE
     Dosage: DAILY
     Route: 048
  5. CIPRODEX [Concomitant]
     Active Substance: CIPROFLOXACIN HYDROCHLORIDE\DEXAMETHASONE
     Route: 065
  6. NORVASC [Concomitant]
     Active Substance: AMLODIPINE BESYLATE
     Dosage: 10 MG, DAILY
  7. LISINOPRIL. [Concomitant]
     Active Substance: LISINOPRIL
  8. COUMADIN [Concomitant]
     Active Substance: WARFARIN SODIUM
  9. PRILOSEC [Suspect]
     Active Substance: OMEPRAZOLE MAGNESIUM
     Indication: GASTROOESOPHAGEAL REFLUX DISEASE
     Dosage: 20.0MG UNKNOWN
     Route: 048
     Dates: start: 2012
  10. PROVENTIL HFA [Concomitant]
     Active Substance: ALBUTEROL SULFATE
  11. BETAPACE [Concomitant]
     Active Substance: SOTALOL HYDROCHLORIDE
     Dosage: ORAL, EVERY 12 HOURS
     Route: 065

REACTIONS (2)
  - Acute kidney injury [Not Recovered/Not Resolved]
  - Renal failure [Unknown]
